FAERS Safety Report 12439050 (Version 1)
Quarter: 2016Q2

REPORT INFORMATION
  Report Type: Report from Study
  Country: US (occurrence: US)
  Receive Date: 20160606
  Receipt Date: 20160606
  Transmission Date: 20160815
  Serious: Yes (Other)
  Sender: FDA-Public Use
  Company Number: US-009507513-1606USA000408

PATIENT
  Sex: Female

DRUGS (1)
  1. SITAGLIPTIN PHOSPHATE [Suspect]
     Active Substance: SITAGLIPTIN PHOSPHATE

REACTIONS (3)
  - Overweight [Unknown]
  - Hypertensive crisis [Unknown]
  - Asthenia [Unknown]
